FAERS Safety Report 10469880 (Version 4)
Quarter: 2015Q2

REPORT INFORMATION
  Report Type: Report from Study
  Country: GR (occurrence: GR)
  Receive Date: 20140923
  Receipt Date: 20150520
  Transmission Date: 20150821
  Serious: Yes (Other)
  Sender: FDA-Public Use
  Company Number: GR-NOVOPROD-409824

PATIENT
  Age: 35 Year
  Sex: Female
  Weight: 76 kg

DRUGS (2)
  1. INSULIN DETEMIR FLEXPEN [Suspect]
     Active Substance: INSULIN DETEMIR
     Indication: GESTATIONAL DIABETES
     Dosage: 12 IU, QD
     Route: 065
     Dates: start: 20140505
  2. INSULIN DETEMIR FLEXPEN [Suspect]
     Active Substance: INSULIN DETEMIR
     Dosage: 16 IU, QD
     Route: 065
     Dates: end: 20140509

REACTIONS (4)
  - Pre-eclampsia [Unknown]
  - HELLP syndrome [Unknown]
  - Premature delivery [Unknown]
  - Exposure during pregnancy [Recovered/Resolved]

NARRATIVE: CASE EVENT DATE: 201405
